FAERS Safety Report 7524734-5 (Version None)
Quarter: 2011Q2

REPORT INFORMATION
  Report Type: 
  Country: None (occurrence: None)
  Receive Date: 20110525
  Receipt Date: 20110516
  Transmission Date: 20111010
  Serious: Yes (Hospitalization)
  Sender: FDA-Public Use
  Company Number: 2011090459

PATIENT
  Age: 63 Year
  Sex: Female

DRUGS (5)
  1. DALTEPARIN SODIUM [Suspect]
     Indication: LUNG NEOPLASM MALIGNANT
     Dates: start: 20101217
  2. RAMIPRIL [Suspect]
     Dosage: 5 MG, DAILY, ORAL
     Route: 048
  3. CYCLIZINE [Concomitant]
  4. ORAMORPH SR [Concomitant]
  5. DICLOFENAC SODIUM [Concomitant]

REACTIONS (4)
  - FALL [None]
  - CONFUSIONAL STATE [None]
  - AMNESIA [None]
  - DRUG DOSE OMISSION [None]
